FAERS Safety Report 11510825 (Version 3)
Quarter: 2015Q4

REPORT INFORMATION
  Report Type: Report from Study
  Country: US (occurrence: US)
  Receive Date: 20150915
  Receipt Date: 20151027
  Transmission Date: 20160304
  Serious: Yes (Other)
  Sender: FDA-Public Use
  Company Number: US-B.I. PHARMACEUTICALS,INC./RIDGEFIELD-2015-BI-40515BP

PATIENT
  Sex: Female

DRUGS (5)
  1. OFEV [Suspect]
     Active Substance: NINTEDANIB
     Indication: IDIOPATHIC PULMONARY FIBROSIS
     Dosage: 200 MG
     Route: 048
     Dates: start: 20150624
  2. OFEV [Suspect]
     Active Substance: NINTEDANIB
     Dosage: 100 MG
     Route: 048
     Dates: start: 20150806
  3. OFEV [Suspect]
     Active Substance: NINTEDANIB
     Dosage: 150 MG
     Route: 048
  4. OFEV [Suspect]
     Active Substance: NINTEDANIB
     Dosage: 200 MG
     Route: 048
     Dates: start: 20150728
  5. OFEV [Suspect]
     Active Substance: NINTEDANIB
     Dosage: 200 MG
     Route: 048
     Dates: start: 20150824

REACTIONS (9)
  - Nausea [Unknown]
  - Dyspnoea [Unknown]
  - Flatulence [Unknown]
  - Musculoskeletal disorder [Unknown]
  - Gait disturbance [Unknown]
  - Abdominal pain upper [Unknown]
  - Productive cough [Unknown]
  - Vomiting [Unknown]
  - Abdominal distension [Unknown]
